FAERS Safety Report 13969336 (Version 2)
Quarter: 2018Q3

REPORT INFORMATION
  Report Type: Spontaneous
  Country: US (occurrence: US)
  Receive Date: 20170914
  Receipt Date: 20180913
  Transmission Date: 20181010
  Serious: Yes (Other)
  Sender: FDA-Public Use
  Company Number: US-ASTELLAS-2017US013598

PATIENT
  Age: 84 Year
  Sex: Male

DRUGS (1)
  1. XTANDI [Suspect]
     Active Substance: ENZALUTAMIDE
     Indication: PROSTATE CANCER
     Route: 048
     Dates: start: 20170211

REACTIONS (17)
  - Pain in extremity [Unknown]
  - Musculoskeletal stiffness [Unknown]
  - Femur fracture [Unknown]
  - Arthralgia [Unknown]
  - Myalgia [Unknown]
  - Drug dose omission [Unknown]
  - Arthritis [Unknown]
  - Decreased appetite [Not Recovered/Not Resolved]
  - Fall [Unknown]
  - Peripheral swelling [Unknown]
  - Gingival bleeding [Recovered/Resolved]
  - Prostatic specific antigen abnormal [Unknown]
  - Arthralgia [Not Recovered/Not Resolved]
  - Memory impairment [Unknown]
  - Fatigue [Not Recovered/Not Resolved]
  - Poor quality sleep [Unknown]
  - Asthenia [Unknown]

NARRATIVE: CASE EVENT DATE: 201706
